FAERS Safety Report 25645206 (Version 1)
Quarter: 2025Q3

REPORT INFORMATION
  Report Type: Spontaneous
  Country: US (occurrence: US)
  Receive Date: 20250805
  Receipt Date: 20250805
  Transmission Date: 20251021
  Serious: Yes (Hospitalization)
  Sender: ELI LILLY AND COMPANY
  Company Number: US-ELI_LILLY_AND_COMPANY-US202506010873

PATIENT
  Age: 90 Year
  Sex: Female

DRUGS (12)
  1. MOUNJARO [Suspect]
     Active Substance: TIRZEPATIDE
     Indication: Type 2 diabetes mellitus
     Route: 065
  2. MOUNJARO [Suspect]
     Active Substance: TIRZEPATIDE
     Indication: Type 2 diabetes mellitus
     Route: 065
  3. MOUNJARO [Suspect]
     Active Substance: TIRZEPATIDE
     Indication: Type 2 diabetes mellitus
     Route: 065
  4. MOUNJARO [Suspect]
     Active Substance: TIRZEPATIDE
     Indication: Type 2 diabetes mellitus
     Route: 065
  5. MOUNJARO [Suspect]
     Active Substance: TIRZEPATIDE
     Indication: Decreased appetite
     Route: 065
  6. MOUNJARO [Suspect]
     Active Substance: TIRZEPATIDE
     Indication: Decreased appetite
     Route: 065
  7. MOUNJARO [Suspect]
     Active Substance: TIRZEPATIDE
     Indication: Decreased appetite
     Route: 065
  8. MOUNJARO [Suspect]
     Active Substance: TIRZEPATIDE
     Indication: Decreased appetite
     Route: 065
  9. MOUNJARO [Suspect]
     Active Substance: TIRZEPATIDE
     Indication: Weight control
  10. MOUNJARO [Suspect]
     Active Substance: TIRZEPATIDE
     Indication: Weight control
  11. MOUNJARO [Suspect]
     Active Substance: TIRZEPATIDE
     Indication: Weight control
  12. MOUNJARO [Suspect]
     Active Substance: TIRZEPATIDE
     Indication: Weight control

REACTIONS (4)
  - Somnolence [Recovering/Resolving]
  - Pyrexia [Recovering/Resolving]
  - Dysarthria [Recovering/Resolving]
  - Bladder disorder [Recovering/Resolving]

NARRATIVE: CASE EVENT DATE: 20250616
